FAERS Safety Report 11170796 (Version 1)
Quarter: 2015Q2

REPORT INFORMATION
  Report Type: Spontaneous
  Country: US (occurrence: None)
  Receive Date: 20150515
  Receipt Date: 20150515
  Transmission Date: 20150821
  Serious: Yes (Hospitalization)
  Sender: FDA-Public Use
  Company Number: 2014014709

PATIENT
  Age: 55 Year
  Sex: Female

DRUGS (9)
  1. CIMZIA [Suspect]
     Active Substance: CERTOLIZUMAB PEGOL
     Indication: RHEUMATOID ARTHRITIS
     Dosage: EV 4 WEEKS
     Route: 058
     Dates: start: 20091218, end: 20140723
  2. SULFASALAZINE. [Concomitant]
     Active Substance: SULFASALAZINE
  3. LEFLUNOMIDE. [Concomitant]
     Active Substance: LEFLUNOMIDE
  4. MOVIPREP (ASCORBIC ACID, MACROGOL 3350, POTASSIUM CHLORIDE, SODIUM ASCORBATE, SODIUM CHLORIDE, SODIUM SULFATE) [Concomitant]
  5. TOVIAZ [Concomitant]
     Active Substance: FESOTERODINE FUMARATE
  6. CLOBETASOL (CLOBETASOL PROPIONATE) [Concomitant]
  7. URIBEL (HYOSCYAMINE SULFATE, METHENAMINE, METHYLTHIONINIUM CHLORIDE, PHENYL SALICYLATE, PHOSPHORIC ACID SODIUM) [Concomitant]
  8. IRON [Concomitant]
     Active Substance: IRON
  9. MULTIVITAMIN (VITAMINS NOS) [Concomitant]
     Active Substance: VITAMINS

REACTIONS (1)
  - Cellulitis [None]

NARRATIVE: CASE EVENT DATE: 20140725
